FAERS Safety Report 23075802 (Version 1)
Quarter: 2023Q4

REPORT INFORMATION
  Report Type: Spontaneous
  Country: US (occurrence: US)
  Receive Date: 20231017
  Receipt Date: 20231017
  Transmission Date: 20240110
  Serious: Yes (Life-Threatening, Other)
  Sender: FDA-Public Use
  Company Number: US-PFIZER INC-PV202300166905

PATIENT
  Age: 37 Year
  Sex: Male

DRUGS (1)
  1. MILRINONE [Suspect]
     Active Substance: MILRINONE
     Indication: Cardiogenic shock
     Dosage: UNK

REACTIONS (2)
  - Coronary artery thrombosis [Recovered/Resolved]
  - Arrhythmic storm [Recovered/Resolved]
